FAERS Safety Report 19026201 (Version 4)
Quarter: 2022Q2

REPORT INFORMATION
  Report Type: Spontaneous
  Country: US (occurrence: US)
  Receive Date: 20210318
  Receipt Date: 20220527
  Transmission Date: 20220721
  Serious: Yes (Other)
  Sender: FDA-Public Use
  Company Number: US-PURDUE PHARMA-USA-2021-0233710

PATIENT
  Age: 65 Year
  Sex: Male
  Weight: 104.31 kg

DRUGS (7)
  1. HYDROMORPHONE [Suspect]
     Active Substance: HYDROMORPHONE
     Indication: Pain
     Dosage: 1/2-1 [4 MG], Q4H PRN
     Route: 048
     Dates: start: 20210212, end: 20210406
  2. HYDROMORPHONE [Suspect]
     Active Substance: HYDROMORPHONE
     Indication: Post laminectomy syndrome
     Dosage: 2 MG, UNK
     Route: 048
     Dates: start: 20220516
  3. MORPHINE [Concomitant]
     Active Substance: MORPHINE
     Indication: Post laminectomy syndrome
     Dosage: 0.55 MG, DAILY
     Route: 037
     Dates: start: 202002
  4. NIFEDIPINE [Concomitant]
     Active Substance: NIFEDIPINE
     Indication: Product used for unknown indication
     Dosage: 30 MG, DAILY
     Route: 048
     Dates: start: 2010
  5. PANTOPRAZOLE [Concomitant]
     Active Substance: PANTOPRAZOLE
     Indication: Dyspepsia
     Dosage: 40 MG, DAILY
     Route: 048
     Dates: start: 2017
  6. IBUPROFEN [Concomitant]
     Active Substance: IBUPROFEN
     Indication: Product used for unknown indication
     Dosage: UNKNOWN
     Route: 048
  7. ASPIRIN [Concomitant]
     Active Substance: ASPIRIN
     Indication: Product used for unknown indication
     Dosage: UNKNOWN
     Route: 048

REACTIONS (6)
  - Knee operation [Unknown]
  - Spinal operation [Unknown]
  - Arthropathy [Unknown]
  - Intentional product misuse [Unknown]
  - Therapeutic product effect decreased [Recovered/Resolved]
  - Inadequate analgesia [Not Recovered/Not Resolved]

NARRATIVE: CASE EVENT DATE: 20210212
